FAERS Safety Report 23706282 (Version 1)
Quarter: 2024Q2

REPORT INFORMATION
  Report Type: Spontaneous
  Country: US (occurrence: US)
  Receive Date: 20240404
  Receipt Date: 20240404
  Transmission Date: 20240716
  Serious: No
  Sender: FDA-Public Use
  Company Number: US-THE RITEDOSE CORPORATION-2023RIT000126

PATIENT

DRUGS (11)
  1. ALBUTEROL SULFATE [Suspect]
     Active Substance: ALBUTEROL SULFATE
     Indication: Asthma
     Dosage: 1 DOSAGE FORM, Q6H
     Route: 055
  2. ALBUTEROL SULFATE [Suspect]
     Active Substance: ALBUTEROL SULFATE
     Indication: Bronchospasm
  3. ALBUTEROL SULFATE [Suspect]
     Active Substance: ALBUTEROL SULFATE
     Indication: Sneezing
  4. ADVAIR HFA [Concomitant]
     Active Substance: FLUTICASONE PROPIONATE\SALMETEROL XINAFOATE
     Indication: Asthma
     Dosage: 500 MILLIGRAM, BID (IN THE MORNING AND EVENING)
  5. ALLEGRA [Concomitant]
     Active Substance: FEXOFENADINE HYDROCHLORIDE
     Indication: Hypersensitivity
     Dosage: UNK UNK, QD
  6. ALBUTEROL SULFATE [Concomitant]
     Active Substance: ALBUTEROL SULFATE
     Indication: Asthma
  7. ALBUTEROL SULFATE [Concomitant]
     Active Substance: ALBUTEROL SULFATE
     Indication: Bronchospasm
  8. ALBUTEROL SULFATE [Concomitant]
     Active Substance: ALBUTEROL SULFATE
     Indication: Sneezing
  9. LEVALBUTEROL [Concomitant]
     Active Substance: LEVALBUTEROL
     Indication: Asthma
     Dosage: UNK
  10. LEVALBUTEROL [Concomitant]
     Active Substance: LEVALBUTEROL
     Indication: Bronchospasm
  11. LEVALBUTEROL [Concomitant]
     Active Substance: LEVALBUTEROL
     Indication: Sneezing

REACTIONS (3)
  - Heart rate increased [Unknown]
  - Tremor [Unknown]
  - Drug ineffective [Unknown]
